FAERS Safety Report 7373160-0 (Version None)
Quarter: 2011Q1

REPORT INFORMATION
  Report Type: 
  Country: None (occurrence: None)
  Receive Date: 20110315
  Receipt Date: 20110225
  Transmission Date: 20110831
  Serious: Yes (Hospitalization)
  Sender: FDA-Public Use
  Company Number: HK-1185324

PATIENT
  Age: 1 Month
  Sex: Female

DRUGS (3)
  1. CYCLOGYL 1 % OPHTHALMIC SOLUTION  (CYCLOPENTOLATE) (ALCON LABORATORIES [Suspect]
     Dosage: (1 GTT X 2,  1 HOUR BEFORE EXAM OPHTHALMIC)
     Route: 047
  2. PHENYLEPHRINE HCL 2.5 % OPHTHALMIC SOLUTION (PHENYLEPHRINE) (FALCON PH [Suspect]
     Dosage: (1 GTT X 2,1 HOUR BEFORE EXAM OPHTHALMIC)  OPHTHALMOLOGICAL EXAMINATION
     Route: 047
  3. OXYBUPROCAINE [Concomitant]

REACTIONS (9)
  - ABDOMINAL DISTENSION [None]
  - LUNG DISORDER [None]
  - HYPOTENSION [None]
  - PNEUMATOSIS INTESTINALIS [None]
  - PATENT DUCTUS ARTERIOSUS [None]
  - LACTOSE INTOLERANCE [None]
  - ACUTE RESPIRATORY DISTRESS SYNDROME [None]
  - SEPSIS [None]
  - NECROTISING COLITIS [None]
